FAERS Safety Report 7325542-0 (Version None)
Quarter: 2011Q1

REPORT INFORMATION
  Report Type: 
  Country: None (occurrence: None)
  Receive Date: 20110302
  Receipt Date: 20110217
  Transmission Date: 20110831
  Serious: Yes (Other)
  Sender: FDA-Public Use
  Company Number: US-AMGEN-USASP2011007360

PATIENT
  Age: 50 Year
  Sex: Female

DRUGS (2)
  1. ENBREL [Suspect]
     Indication: RHEUMATOID ARTHRITIS
     Dosage: 50 MG, QWK
     Dates: start: 20101014
  2. TREXALL [Concomitant]
     Dosage: 14 MG, QWK

REACTIONS (8)
  - RHEUMATOID ARTHRITIS [None]
  - HYPOAESTHESIA [None]
  - GAIT DISTURBANCE [None]
  - BLOOD BLISTER [None]
  - INJECTION SITE PAIN [None]
  - PAIN IN EXTREMITY [None]
  - ERYTHEMA [None]
  - ASTHENIA [None]
